FAERS Safety Report 15349953 (Version 1)
Quarter: 2018Q3

REPORT INFORMATION
  Report Type: Report from Study
  Country: BR (occurrence: BR)
  Receive Date: 20180904
  Receipt Date: 20180904
  Transmission Date: 20181010
  Serious: Yes (Life-Threatening, Hospitalization)
  Sender: FDA-Public Use
  Company Number: PHHY2018BR088310

PATIENT
  Sex: Male
  Weight: 14.4 kg

DRUGS (4)
  1. EXJADE [Suspect]
     Active Substance: DEFERASIROX
     Indication: SICKLE CELL ANAEMIA
     Dosage: 5 DF, UNK
     Route: 048
  2. EXJADE [Suspect]
     Active Substance: DEFERASIROX
     Dosage: 1 DF, QD
     Route: 048
     Dates: start: 2017, end: 2017
  3. HYDREA [Concomitant]
     Active Substance: HYDROXYUREA
     Indication: SICKLE CELL ANAEMIA
     Dosage: 1 DF, QD
     Route: 048
  4. FOLIC ACID. [Concomitant]
     Active Substance: FOLIC ACID
     Indication: SICKLE CELL ANAEMIA
     Dosage: 40 DRP, QD
     Route: 048

REACTIONS (7)
  - Feeling abnormal [Unknown]
  - Wrong technique in product usage process [Unknown]
  - Drug hypersensitivity [Recovered/Resolved]
  - Oropharyngeal pain [Unknown]
  - Malaise [Unknown]
  - Dyspnoea [Unknown]
  - Blood iron increased [Recovered/Resolved]
